FAERS Safety Report 10232671 (Version 1)
Quarter: 2014Q2

REPORT INFORMATION
  Report Type: Report from Study
  Country: US (occurrence: US)
  Receive Date: 20140612
  Receipt Date: 20140612
  Transmission Date: 20141212
  Serious: Yes (Hospitalization)
  Sender: FDA-Public Use
  Company Number: US-ORION CORPORATION ORION PHARMA-ENTC2014-0200

PATIENT
  Sex: Male

DRUGS (1)
  1. STALEVO [Suspect]
     Route: 048

REACTIONS (1)
  - Cerebrovascular accident [Unknown]
